FAERS Safety Report 10605654 (Version 1)
Quarter: 2014Q4

REPORT INFORMATION
  Report Type: Spontaneous
  Country: DE (occurrence: DE)
  Receive Date: 20141125
  Receipt Date: 20141125
  Transmission Date: 20150529
  Serious: Yes (Other)
  Sender: FDA-Public Use
  Company Number: GXKR2014DE004290

PATIENT

DRUGS (1)
  1. QUETIAPINE [Suspect]
     Active Substance: QUETIAPINE
     Indication: DEPRESSION
     Dosage: 100 [MG/D ]/ DURING PREGNANCY AND AT LEAST FOR FURTHER 11 WEEKS AFTER BIRTH
     Route: 063

REACTIONS (1)
  - Respiratory arrest [Recovered/Resolved]
